FAERS Safety Report 5596794-2 (Version None)
Quarter: 2008Q1

REPORT INFORMATION
  Report Type: 
  Country: None (occurrence: None)
  Receive Date: 20080118
  Receipt Date: 20080108
  Transmission Date: 20080703
  Serious: Yes (Hospitalization)
  Sender: FDA-Public Use
  Company Number: IT-PFIZER INC-2008003593

PATIENT
  Sex: Male

DRUGS (2)
  1. BENUR [Suspect]
     Indication: URINE FLOW DECREASED
     Dosage: DAILY DOSE:2MG-FREQ:DAILY
     Dates: start: 20071221, end: 20071222
  2. VENOPLANT [Concomitant]
     Dates: start: 20071221, end: 20071222

REACTIONS (1)
  - STEVENS-JOHNSON SYNDROME [None]
